FAERS Safety Report 8848884 (Version 1)
Quarter: 2012Q4

REPORT INFORMATION
  Report Type: Spontaneous
  Country: AU (occurrence: None)
  Receive Date: 20121016
  Receipt Date: 20121016
  Transmission Date: 20130627
  Serious: Yes (Other)
  Sender: FDA-Public Use
  Company Number: FK201202974

PATIENT
  Age: 82 Year
  Sex: Female

DRUGS (2)
  1. HEPARIN (MANUFACTURER UNKNOWN)(HEPARIN)(HEPARIN) [Suspect]
     Indication: ANTICOAGULANT THERAPY
  2. WARFARIN (WARFARIN) [Concomitant]

REACTIONS (2)
  - Vascular pseudoaneurysm [None]
  - Vessel puncture site haematoma [None]
